FAERS Safety Report 16479797 (Version 1)
Quarter: 2019Q2

REPORT INFORMATION
  Report Type: Spontaneous
  Country: NO (occurrence: NO)
  Receive Date: 20190626
  Receipt Date: 20190626
  Transmission Date: 20190711
  Serious: Yes (Disabling, Other)
  Sender: FDA-Public Use
  Company Number: NO-TEVA-2019-NO-1066621

PATIENT
  Age: 50 Year
  Sex: Male
  Weight: 110 kg

DRUGS (3)
  1. SOBRIL [Interacting]
     Active Substance: OXAZEPAM
     Dosage: 1 TABLET MORNING AND 1 TABLET EVENING (15MG)
     Route: 048
     Dates: start: 20170505
  2. OLANZAPINE TEVA [Suspect]
     Active Substance: OLANZAPINE
     Indication: PSYCHOTIC DISORDER
     Dosage: 5MG
     Route: 048
     Dates: start: 20010101
  3. TEGRETOL XR [Interacting]
     Active Substance: CARBAMAZEPINE
     Dosage: CARBAMAZEPINE WEAKENS THE OTHER MEDICINES
     Route: 048
     Dates: start: 19910303

REACTIONS (8)
  - Schizophrenia [Unknown]
  - Anxiety [Not Recovered/Not Resolved]
  - Asocial behaviour [Not Recovered/Not Resolved]
  - Paroxysmal choreoathetosis [Unknown]
  - Somnolence [Not Recovered/Not Resolved]
  - Irritability [Not Recovered/Not Resolved]
  - Inhibitory drug interaction [Not Recovered/Not Resolved]
  - Restlessness [Unknown]
